FAERS Safety Report 7790367-9 (Version None)
Quarter: 2011Q3

REPORT INFORMATION
  Report Type: 
  Country: None (occurrence: None)
  Receive Date: 20110930
  Receipt Date: 20110928
  Transmission Date: 20111222
  Serious: Yes (Death, Other)
  Sender: FDA-Public Use
  Company Number: US-ELI_LILLY_AND_COMPANY-US201109001265

PATIENT
  Sex: Male
  Weight: 86.168 kg

DRUGS (4)
  1. FOLIC ACID [Concomitant]
     Dosage: 1 MG, UNK
     Route: 048
  2. ALIMTA [Suspect]
     Indication: LUNG CARCINOMA CELL TYPE UNSPECIFIED STAGE IV
     Dosage: 1125 MG, UNK
     Route: 042
     Dates: start: 20110308, end: 20110308
  3. DECADRON [Concomitant]
     Route: 048
  4. VITAMIN B-12 [Concomitant]
     Dosage: 1000 UG, UNK
     Route: 030
     Dates: start: 20110301

REACTIONS (5)
  - NEOPLASM MALIGNANT [None]
  - DEATH [None]
  - HOSPICE CARE [None]
  - FALL [None]
  - HIP FRACTURE [None]
